FAERS Safety Report 9253986 (Version 2)
Quarter: 2013Q2

REPORT INFORMATION
  Report Type: Spontaneous
  Country: IT (occurrence: IT)
  Receive Date: 20130425
  Receipt Date: 20130523
  Transmission Date: 20140414
  Serious: Yes (Other)
  Sender: FDA-Public Use
  Company Number: IT-TEVA-399174ISR

PATIENT
  Age: 64 Year
  Sex: Female
  Weight: 60 kg

DRUGS (6)
  1. FLUDARABINA TEVA [Suspect]
     Indication: CHRONIC LYMPHOCYTIC LEUKAEMIA
     Dosage: 19.5 MILLIGRAM DAILY;
     Route: 042
     Dates: start: 20121121, end: 20121123
  2. ENDOXAN BAXTER [Suspect]
     Indication: CHRONIC LYMPHOCYTIC LEUKAEMIA
     Dosage: 200 MILLIGRAM DAILY;
     Route: 042
     Dates: start: 20121121, end: 20121123
  3. MABTHERA [Suspect]
     Indication: CHRONIC LYMPHOCYTIC LEUKAEMIA
     Dosage: 300 MILLIGRAM DAILY;
     Route: 042
     Dates: start: 20121120, end: 20121120
  4. OMEPRAZOLO 20 MG [Concomitant]
     Dosage: 20 MILLIGRAM DAILY;
     Route: 048
  5. KYTRIL [Concomitant]
     Indication: PROPHYLAXIS OF NAUSEA AND VOMITING
     Route: 048
     Dates: start: 20121120, end: 20121123
  6. ALLOPURINOLO [Concomitant]
     Dosage: 300 MILLIGRAM DAILY;
     Route: 048
     Dates: start: 201209

REACTIONS (2)
  - Hepatotoxicity [Recovering/Resolving]
  - Neutropenia [Recovering/Resolving]
